FAERS Safety Report 6123040-3 (Version None)
Quarter: 2009Q1

REPORT INFORMATION
  Report Type: 
  Country: None (occurrence: None)
  Receive Date: 20090318
  Receipt Date: 20080206
  Transmission Date: 20090719
  Serious: No
  Sender: FDA-Public Use
  Company Number: US-AMGEN-KDL264460

PATIENT
  Sex: Female

DRUGS (10)
  1. NEULASTA [Suspect]
     Indication: CHEMOTHERAPY
  2. CENTRUM SILVER [Concomitant]
  3. COMPAZINE [Concomitant]
  4. ZOFRAN [Concomitant]
  5. ACTONEL [Concomitant]
  6. PEPCID [Concomitant]
  7. KYTRIL [Concomitant]
  8. DEXAMETHASONE TAB [Concomitant]
  9. ADRIAMYCIN RDF [Concomitant]
  10. TAXOL [Concomitant]

REACTIONS (2)
  - PRURITUS [None]
  - URTICARIA [None]
